FAERS Safety Report 14536624 (Version 1)
Quarter: 2018Q1

REPORT INFORMATION
  Report Type: Not Available
  Country: US (occurrence: US)
  Receive Date: 20180215
  Receipt Date: 20180215
  Transmission Date: 20180509
  Serious: Yes (Life-Threatening, Hospitalization)
  Sender: FDA-Public Use
  Company Number: US-C B FLEET CO INC-201802-US-000248

PATIENT
  Age: 51 Year
  Sex: Male

DRUGS (1)
  1. CHLORASEPTIC WARMING SORE THROAT SPRAY [Suspect]
     Active Substance: PHENOL
     Indication: OROPHARYNGEAL PAIN
     Route: 049
     Dates: start: 20180131, end: 20180131

REACTIONS (7)
  - Pneumonitis [Not Recovered/Not Resolved]
  - Hypersensitivity [Not Recovered/Not Resolved]
  - Goitre [None]
  - Laryngeal oedema [Not Recovered/Not Resolved]
  - Localised oedema [Not Recovered/Not Resolved]
  - Respiratory distress [Recovered/Resolved]
  - Pharyngeal oedema [Not Recovered/Not Resolved]

NARRATIVE: CASE EVENT DATE: 20180131
